FAERS Safety Report 7496868-5 (Version None)
Quarter: 2011Q2

REPORT INFORMATION
  Report Type: 
  Country: None (occurrence: None)
  Receive Date: 20110523
  Receipt Date: 20110512
  Transmission Date: 20111010
  Serious: Yes (Hospitalization, Other)
  Sender: FDA-Public Use
  Company Number: US-ELI_LILLY_AND_COMPANY-US201105004459

PATIENT
  Age: 69 Year
  Sex: Female

DRUGS (3)
  1. NOVOLOG [Concomitant]
     Dosage: UNK
  2. HUMULIN R [Suspect]
     Indication: DIABETES MELLITUS
     Dosage: UNK UNK, TID
     Dates: start: 19910101
  3. LANTUS [Concomitant]
     Dosage: UNK

REACTIONS (7)
  - MYOCARDIAL INFARCTION [None]
  - HALLUCINATION [None]
  - CELLULITIS [None]
  - CENTRAL NERVOUS SYSTEM INFECTION [None]
  - BLOOD GLUCOSE INCREASED [None]
  - DRUG INEFFECTIVE [None]
  - MALAISE [None]
